FAERS Safety Report 4483222-3 (Version None)
Quarter: 2004Q3

REPORT INFORMATION
  Report Type: 
  Country: None (occurrence: None)
  Receive Date: 20040921
  Receipt Date: 20040624
  Transmission Date: 20050211
  Serious: Yes (Death, Hospitalization)
  Sender: FDA-Public Use
  Company Number: 163-20785-04060647

PATIENT
  Age: 63 Year
  Sex: Male
  Weight: 90.7194 kg

DRUGS (4)
  1. THALOMID [Suspect]
     Indication: BRAIN NEOPLASM
     Dosage: 200 MG DAILY AND INCREASING BY 100MG WEKLY MG, DAILY, ORAL
     Route: 048
     Dates: start: 20040511, end: 20040609
  2. PROCARBAZINE (PROCARBAZINE) (UNKNOWN) [Suspect]
     Indication: BRAIN NEOPLASM
     Dosage: 2500 MG, OVER FIVE DAYS,
     Dates: start: 20040511, end: 20040515
  3. DILANTIN [Concomitant]
  4. DECADRON [Concomitant]

REACTIONS (5)
  - DEATH [None]
  - DEEP VEIN THROMBOSIS [None]
  - DISEASE PROGRESSION [None]
  - DYSPNOEA [None]
  - PULMONARY EMBOLISM [None]
